FAERS Safety Report 14269279 (Version 1)
Quarter: 2017Q4

REPORT INFORMATION
  Report Type: Spontaneous
  Country: US (occurrence: US)
  Receive Date: 20171211
  Receipt Date: 20171211
  Transmission Date: 20180321
  Serious: Yes (Hospitalization, Other)
  Sender: FDA-Public Use
  Company Number: US-ASTELLAS-2017US051623

PATIENT
  Age: 70 Year
  Sex: Female

DRUGS (2)
  1. TACROLIMUS. [Suspect]
     Active Substance: TACROLIMUS
     Route: 065
  2. TACROLIMUS. [Suspect]
     Active Substance: TACROLIMUS
     Indication: RENAL TRANSPLANT
     Route: 065

REACTIONS (6)
  - Right ventricular failure [Recovered/Resolved]
  - Pulmonary hypertension [Unknown]
  - Tricuspid valve incompetence [Recovered/Resolved]
  - Fluid overload [Recovering/Resolving]
  - Acute kidney injury [Unknown]
  - Immunosuppressant drug level increased [Recovered/Resolved]
